FAERS Safety Report 8969403 (Version 1)
Quarter: 2012Q4

REPORT INFORMATION
  Report Type: 
  Country: US (occurrence: US)
  Receive Date: 20121218
  Receipt Date: 20121218
  Transmission Date: 20130627
  Serious: No
  Sender: FDA-Public Use
  Company Number: US-BRISTOL-MYERS SQUIBB COMPANY-16640955

PATIENT
  Age: 60 Year
  Sex: Female
  Weight: 52 kg

DRUGS (2)
  1. ABILIFY TABS [Suspect]
     Dosage: 10mg
  2. PRISTIQ [Concomitant]

REACTIONS (15)
  - Amnesia [Unknown]
  - Hearing impaired [Unknown]
  - Headache [Unknown]
  - Tremor [Unknown]
  - Respiratory disorder [Unknown]
  - Visual impairment [Unknown]
  - Weight increased [Unknown]
  - Hypoaesthesia [Unknown]
  - Eating disorder [Unknown]
  - Epistaxis [Unknown]
  - Cough [Unknown]
  - Confusional state [Unknown]
  - Weight decreased [Recovered/Resolved]
  - Arthropathy [Unknown]
  - Concussion [Unknown]
